FAERS Safety Report 4475580-0 (Version None)
Quarter: 2004Q4

REPORT INFORMATION
  Report Type: 
  Country: None (occurrence: None)
  Receive Date: 20041015
  Receipt Date: 20041001
  Transmission Date: 20050328
  Serious: Yes (Other)
  Sender: FDA-Public Use
  Company Number: IT-MERCK-0410ITA00011

PATIENT
  Age: 80 Year
  Sex: Male

DRUGS (2)
  1. VIOXX [Suspect]
     Route: 048
     Dates: start: 20000101, end: 20010101
  2. VIOXX [Suspect]
     Route: 048
     Dates: start: 20020101

REACTIONS (1)
  - MYOCARDIAL INFARCTION [None]
